FAERS Safety Report 8308714-8 (Version None)
Quarter: 2012Q2

REPORT INFORMATION
  Report Type: 
  Country: None (occurrence: None)
  Receive Date: 20120420
  Receipt Date: 20120420
  Transmission Date: 20120825
  Serious: Yes (Other)
  Sender: FDA-Public Use
  Company Number: None

PATIENT
  Sex: Female
  Weight: 138.35 kg

DRUGS (2)
  1. NARDIL [Suspect]
     Indication: DEPRESSION
     Dosage: 2 TABLETS IN THE MORNING 1 TABLET MID-DAY 2 TABLETS IN EVENING
     Dates: start: 20120323
  2. NARDIL [Suspect]
     Indication: ANXIETY
     Dosage: 2 TABLETS IN THE MORNING 1 TABLET MID-DAY 2 TABLETS IN EVENING
     Dates: start: 20120323

REACTIONS (6)
  - PRODUCT SUBSTITUTION ISSUE [None]
  - NAUSEA [None]
  - DEPRESSION [None]
  - VOMITING [None]
  - HEADACHE [None]
  - ANXIETY [None]
